FAERS Safety Report 25209230 (Version 1)
Quarter: 2025Q2

REPORT INFORMATION
  Report Type: Spontaneous
  Country: US (occurrence: US)
  Receive Date: 20250417
  Receipt Date: 20250417
  Transmission Date: 20250717
  Serious: No
  Sender: SANOFI AVENTIS
  Company Number: US-SA-2025SA107689

PATIENT
  Age: 26 Year
  Sex: Male

DRUGS (3)
  1. DUPIXENT [Suspect]
     Active Substance: DUPILUMAB
     Indication: Dermatitis atopic
     Dosage: 300 MG, QOW
     Route: 058
  2. DUPIXENT [Suspect]
     Active Substance: DUPILUMAB
     Dosage: 300 MG, QOW
     Route: 058
     Dates: start: 202410
  3. AUVELITY [Concomitant]
     Active Substance: BUPROPION HYDROCHLORIDE\DEXTROMETHORPHAN HYDROBROMIDE

REACTIONS (6)
  - Sleep disorder [Unknown]
  - Dizziness [Unknown]
  - Pruritus [Unknown]
  - Swelling of eyelid [Unknown]
  - Eyelids pruritus [Unknown]
  - Rash [Unknown]
